FAERS Safety Report 17442232 (Version 3)
Quarter: 2023Q4

REPORT INFORMATION
  Report Type: Report from Study
  Country: IT (occurrence: IT)
  Receive Date: 20200220
  Receipt Date: 20231212
  Transmission Date: 20240110
  Serious: Yes (Congenital Anomaly, Other)
  Sender: FDA-Public Use
  Company Number: IT-GILEAD-2020-0451404

PATIENT

DRUGS (7)
  1. EMTRICITABINE\TENOFOVIR DISOPROXIL FUMARATE [Suspect]
     Active Substance: EMTRICITABINE\TENOFOVIR DISOPROXIL FUMARATE
     Indication: HIV infection
     Dosage: UNK
     Route: 064
  2. ISENTRESS [Suspect]
     Active Substance: RALTEGRAVIR POTASSIUM
     Indication: Product used for unknown indication
     Dosage: UNK
     Route: 064
  3. ISENTRESS [Suspect]
     Active Substance: RALTEGRAVIR POTASSIUM
     Dosage: UNK
     Route: 064
  4. RETROVIR [Suspect]
     Active Substance: ZIDOVUDINE
     Indication: Product used for unknown indication
     Dosage: UNK
     Route: 064
  5. RETROVIR [Suspect]
     Active Substance: ZIDOVUDINE
     Dosage: UNK
     Route: 064
  6. RETROVIR [Suspect]
     Active Substance: ZIDOVUDINE
     Dosage: UNK
     Route: 064
  7. RALTEGRAVIR [Suspect]
     Active Substance: RALTEGRAVIR
     Indication: Product used for unknown indication
     Dosage: UNK
     Route: 064

REACTIONS (3)
  - Cerebral palsy [Unknown]
  - Psychomotor retardation [Unknown]
  - Foetal exposure during pregnancy [Recovered/Resolved]
